FAERS Safety Report 8835376 (Version 2)
Quarter: 2012Q4

REPORT INFORMATION
  Report Type: 
  Country: JP (occurrence: JP)
  Receive Date: 20121011
  Receipt Date: 20121019
  Transmission Date: 20130627
  Serious: Yes (Other)
  Sender: FDA-Public Use
  Company Number: JP-BAXTER-2012BAX019595

PATIENT
  Age: 65 Year
  Sex: Male

DRUGS (3)
  1. CYCLOPHOSPHAMIDE [Suspect]
     Indication: MICROSCOPIC POLYANGIITIS
  2. CYCLOPHOSPHAMIDE [Suspect]
     Indication: PULMONARY ALVEOLAR HAEMORRHAGE
  3. PREDONINE [Concomitant]
     Indication: VASCULITIS
     Route: 048

REACTIONS (2)
  - Neoplasm [Recovering/Resolving]
  - Squamous cell carcinoma of lung [Recovering/Resolving]
